FAERS Safety Report 7415217-1 (Version None)
Quarter: 2011Q2

REPORT INFORMATION
  Report Type: 
  Country: None (occurrence: None)
  Receive Date: 20110414
  Receipt Date: 20110402
  Transmission Date: 20111010
  Serious: Yes (Other)
  Sender: FDA-Public Use
  Company Number: US-PAR PHARMACEUTICAL, INC-2011SCPR002858

PATIENT
  Age: 66 Year
  Sex: Female

DRUGS (3)
  1. PROPRANOLOL HCL [Suspect]
     Indication: HYPERTENSION
     Dosage: 10 MG, BID
     Route: 065
  2. EPINEPHRINE [Suspect]
     Indication: PLASTIC SURGERY
     Dosage: 0.20 MG, UNK
     Route: 065
  3. LIDOCAINE [Suspect]
     Indication: PLASTIC SURGERY
     Dosage: 8-40ML OF 0.5-1%
     Route: 065

REACTIONS (2)
  - HYPERTENSIVE CRISIS [None]
  - DRUG INTERACTION [None]
